FAERS Safety Report 9360696 (Version 1)
Quarter: 2013Q2

REPORT INFORMATION
  Report Type: Spontaneous
  Country: IE (occurrence: IE)
  Receive Date: 20130621
  Receipt Date: 20130621
  Transmission Date: 20140414
  Serious: Yes (Other)
  Sender: FDA-Public Use
  Company Number: IE-ACCORD-018152

PATIENT
  Age: 79 Year
  Sex: Male

DRUGS (1)
  1. GEMCITABINE [Suspect]
     Indication: CHEMOTHERAPY
     Dosage: TWO CYCLES OF GEMCITABINE

REACTIONS (1)
  - Eosinophilic pneumonia [Recovered/Resolved]
